FAERS Safety Report 22132666 (Version 4)
Quarter: 2023Q2

REPORT INFORMATION
  Report Type: Spontaneous
  Country: US (occurrence: US)
  Receive Date: 20230323
  Receipt Date: 20230405
  Transmission Date: 20230721
  Serious: Yes (Other)
  Sender: FDA-Public Use
  Company Number: US-PFIZER INC-202300126942

PATIENT
  Age: 67 Year
  Sex: Female
  Weight: 77.11 kg

DRUGS (3)
  1. BRAFTOVI [Suspect]
     Active Substance: ENCORAFENIB
     Dosage: 450 MG, 1X/DAY, (TAKES 6 PILLS A DAY)
     Dates: start: 20230322
  2. MEKTOVI [Suspect]
     Active Substance: BINIMETINIB
     Indication: Malignant melanoma
     Dosage: 45 MG, 2X/DAY(EVERY TWELVE HOURS/TAKES 3 PILLS OF MEKTOVI 9 AM AND THEN 3 PILLS AT 9 PM)
     Dates: start: 20230322
  3. MEKTOVI [Suspect]
     Active Substance: BINIMETINIB
     Indication: Metastases to lymph nodes
     Dosage: 15 MG, 1X/DAY
     Dates: start: 20230322

REACTIONS (4)
  - Angina pectoris [Unknown]
  - Malaise [Unknown]
  - Off label use [Unknown]
  - Off label use [Unknown]

NARRATIVE: CASE EVENT DATE: 20230101
